FAERS Safety Report 25734805 (Version 1)
Quarter: 2025Q3

REPORT INFORMATION
  Report Type: Spontaneous
  Country: US (occurrence: None)
  Receive Date: 20250828
  Receipt Date: 20250828
  Transmission Date: 20251021
  Serious: Yes (Hospitalization)
  Sender: FDA-CTU
  Company Number: None

PATIENT
  Age: 74 Year
  Sex: Male
  Weight: 69.3 kg

DRUGS (4)
  1. IPILIMUMAB [Suspect]
     Active Substance: IPILIMUMAB
     Dates: start: 20250424
  2. NIVOLUMAB [Suspect]
     Active Substance: NIVOLUMAB
     Dates: start: 20250711
  3. MIDODRINE [Concomitant]
     Active Substance: MIDODRINE
  4. ZOSYN [Concomitant]
     Active Substance: PIPERACILLIN SODIUM\TAZOBACTAM SODIUM

REACTIONS (20)
  - Hypotension [None]
  - Asthenia [None]
  - Fatigue [None]
  - Weight decreased [None]
  - Nausea [None]
  - Leukocytosis [None]
  - Lactic acidosis [None]
  - Hypokalaemia [None]
  - Sepsis [None]
  - Gait inability [None]
  - Activities of daily living assessment [None]
  - Compression fracture [None]
  - Renal mass [None]
  - Liver disorder [None]
  - Adrenal insufficiency [None]
  - Confusional state [None]
  - Failure to thrive [None]
  - Renal cancer metastatic [None]
  - Pneumonia aspiration [None]
  - Atelectasis [None]

NARRATIVE: CASE EVENT DATE: 20250717
